FAERS Safety Report 22172772 (Version 3)
Quarter: 2023Q2

REPORT INFORMATION
  Report Type: Spontaneous
  Country: US (occurrence: US)
  Receive Date: 20230404
  Receipt Date: 20230531
  Transmission Date: 20230721
  Serious: No
  Sender: FDA-Public Use
  Company Number: US-PFIZER INC-PV202200105364

PATIENT
  Age: 29 Year
  Sex: Female
  Weight: 70.295 kg

DRUGS (1)
  1. CIBINQO [Suspect]
     Active Substance: ABROCITINIB
     Indication: Dermatitis atopic
     Dosage: 1 DF, 1X/DAY
     Route: 048

REACTIONS (2)
  - Dermatitis atopic [Unknown]
  - Impaired quality of life [Unknown]
